FAERS Safety Report 24644403 (Version 2)
Quarter: 2024Q4

REPORT INFORMATION
  Report Type: Spontaneous
  Country: FR (occurrence: FR)
  Receive Date: 20241120
  Receipt Date: 20241127
  Transmission Date: 20250114
  Serious: Yes (Life-Threatening)
  Sender: ABBVIE
  Company Number: None

PATIENT
  Age: 60 Year
  Sex: Female

DRUGS (1)
  1. RINVOQ [Suspect]
     Active Substance: UPADACITINIB
     Indication: Rheumatoid arthritis
     Dosage: 15 MG, COMPRIM? ? LIB?RATION PROLONG?E
     Route: 048
     Dates: start: 20210701, end: 20241112

REACTIONS (2)
  - Subarachnoid haemorrhage [Recovered/Resolved]
  - Choroidal neovascularisation [Recovering/Resolving]

NARRATIVE: CASE EVENT DATE: 20240719
